FAERS Safety Report 6498811-4 (Version None)
Quarter: 2009Q4

REPORT INFORMATION
  Report Type: 
  Country: None (occurrence: None)
  Receive Date: 20091127
  Receipt Date: 20081120
  Transmission Date: 20100525
  Serious: Yes (Disabling)
  Sender: FDA-Public Use
  Company Number: WAES 0811USA03137

PATIENT
  Age: 70 Year
  Sex: Female

DRUGS (2)
  1. FOSAMAX [Suspect]
     Indication: OSTEOPOROSIS PROPHYLAXIS
     Dosage: PO
     Route: 048
     Dates: start: 20080401
  2. FOSAMAX PLUS D [Concomitant]

REACTIONS (2)
  - SCLERITIS [None]
  - UVEITIS [None]
